FAERS Safety Report 8112107-6 (Version None)
Quarter: 2012Q1

REPORT INFORMATION
  Report Type: 
  Country: None (occurrence: None)
  Receive Date: 20120203
  Receipt Date: 20120131
  Transmission Date: 20120608
  Serious: Yes (Other)
  Sender: FDA-Public Use
  Company Number: US-PFIZER INC-2011265726

PATIENT

DRUGS (2)
  1. PHENYTOIN [Suspect]
     Dosage: UNK
  2. DILANTIN [Suspect]
     Dosage: 100 MG, UNK

REACTIONS (3)
  - GRAND MAL CONVULSION [None]
  - BLOOD CHOLESTEROL INCREASED [None]
  - BALANCE DISORDER [None]
